FAERS Safety Report 19581735 (Version 1)
Quarter: 2021Q3

REPORT INFORMATION
  Report Type: Spontaneous
  Country: DE (occurrence: DE)
  Receive Date: 20210720
  Receipt Date: 20210720
  Transmission Date: 20211014
  Serious: Yes (Hospitalization)
  Sender: FDA-Public Use
  Company Number: DE-TEVA-2021-DE-1933244

PATIENT
  Age: 33 Year
  Sex: Male

DRUGS (4)
  1. FLUOXETIN [Suspect]
     Active Substance: FLUOXETINE HYDROCHLORIDE
     Dosage: 20 MG
     Dates: start: 20210101, end: 20210319
  2. FLUOXETIN [Suspect]
     Active Substance: FLUOXETINE HYDROCHLORIDE
     Dosage: 40 MG
     Dates: start: 20210320
  3. ABILIFY [Suspect]
     Active Substance: ARIPIPRAZOLE
     Dosage: 5 MG
     Dates: start: 20210406, end: 20210416
  4. BISOPROLOL [Concomitant]
     Active Substance: BISOPROLOL
     Dosage: 2.5 MG ,TAKING FOR A LONG TIME

REACTIONS (1)
  - Accommodation disorder [Recovered/Resolved]

NARRATIVE: CASE EVENT DATE: 20210413
